FAERS Safety Report 12888804 (Version 7)
Quarter: 2020Q4

REPORT INFORMATION
  Report Type: Spontaneous
  Country: US (occurrence: US)
  Receive Date: 20161027
  Receipt Date: 20201210
  Transmission Date: 20210113
  Serious: Yes (Other)
  Sender: FDA-Public Use
  Company Number: US-PFIZER INC-2016496717

PATIENT
  Age: 66 Year
  Sex: Female
  Weight: 61 kg

DRUGS (6)
  1. SUTENT [Suspect]
     Active Substance: SUNITINIB MALATE
     Dosage: 1 DF, CYCLIC  (1 CAPSULE WITH OR WITHOUT FOOD, 4 WEEKS ON/2 WEEKS OFF)
     Route: 048
     Dates: start: 20161123
  2. SUTENT [Suspect]
     Active Substance: SUNITINIB MALATE
     Dosage: 50 MG, EVERY OTHER DAY
     Dates: start: 20161017
  3. SUTENT [Suspect]
     Active Substance: SUNITINIB MALATE
     Indication: METASTATIC RENAL CELL CARCINOMA
     Dosage: 50 MG, EVERY DAY
     Route: 048
     Dates: start: 20161009
  4. SUTENT [Suspect]
     Active Substance: SUNITINIB MALATE
     Dosage: 1 DF, CYCLIC (1 CAPSULE WITH OR WITHOUT FOOD, 4 WEEKS ON/2 WEEKS OFF)
     Route: 048
     Dates: start: 20171003
  5. SUTENT [Suspect]
     Active Substance: SUNITINIB MALATE
     Dosage: 25 MG, CYCLIC (1 CAPSULE WITH OR WITHOUT FOOD, 4 WEEKS ON/2 WEEKS OFF)
     Route: 048
     Dates: start: 20161018
  6. SUTENT [Suspect]
     Active Substance: SUNITINIB MALATE
     Dosage: 25 MG, 1X/DAY
     Route: 048

REACTIONS (14)
  - Diarrhoea [Not Recovered/Not Resolved]
  - Fatigue [Not Recovered/Not Resolved]
  - Haemoglobin decreased [Unknown]
  - Skin lesion [Not Recovered/Not Resolved]
  - Hypothyroidism [Not Recovered/Not Resolved]
  - Hypertension [Not Recovered/Not Resolved]
  - Thrombosis [Not Recovered/Not Resolved]
  - Off label use [Unknown]
  - Arteriovenous malformation [Recovering/Resolving]
  - Abdominal pain [Unknown]
  - Tongue disorder [Not Recovered/Not Resolved]
  - Rectal haemorrhage [Recovering/Resolving]
  - Neoplasm progression [Unknown]
  - Malaise [Unknown]

NARRATIVE: CASE EVENT DATE: 20161010
